FAERS Safety Report 15483591 (Version 2)
Quarter: 2018Q4

REPORT INFORMATION
  Report Type: Spontaneous
  Country: US (occurrence: US)
  Receive Date: 20181010
  Receipt Date: 20181126
  Transmission Date: 20190205
  Serious: No
  Sender: FDA-Public Use
  Company Number: US-PFIZER INC-2016439759

PATIENT
  Age: 48 Year
  Sex: Female

DRUGS (15)
  1. FIORICET [Concomitant]
     Active Substance: ACETAMINOPHEN\BUTALBITAL\CAFFEINE
     Dosage: 1 DF, AS NEEDED [BUTALBITAL-50MG]/ [PARACETAMOL-300MG]/ [CAFFEINE-40MG] (ONE CAP EVERY 6 HOURS)
  2. SPIRIVA [Concomitant]
     Active Substance: TIOTROPIUM BROMIDE MONOHYDRATE
     Dosage: 18 UG, DAILY (INHALE 1 CAPSULE DAILY)
     Route: 055
  3. BACLOFEN. [Concomitant]
     Active Substance: BACLOFEN
     Indication: MUSCLE SPASMS
     Dosage: 10 MG, AS NEEDED (TAKE ONE TABLET BY MOUTH TWICE A DAY AS NEEDED FOR MUSCLE SPASM)
     Route: 048
  4. MAXALT-MLT [Concomitant]
     Active Substance: RIZATRIPTAN BENZOATE
     Indication: MIGRAINE
     Dosage: 5 MG, UNK (TAKE ONE TABLET WITH MIGRAINE MAY REPEAT IN 2 HOURS)
  5. LYRICA [Suspect]
     Active Substance: PREGABALIN
     Indication: NEURALGIA
     Dosage: 150 MG, 2X/DAY (1 CAP PO BID FOR NEUROPATHIC PAIN)
     Route: 048
  6. PROAIR HFA [Concomitant]
     Active Substance: ALBUTEROL SULFATE
     Indication: DYSPNOEA
     Dosage: UNK UNK, AS NEEDED (2 PUFFS EVERY 6 HOURS AS NEEDED FOR SHORTNESS OF BREATH)
  7. HYDROXYZINE HYDROCHLORIDE. [Concomitant]
     Active Substance: HYDROXYZINE HYDROCHLORIDE
     Dosage: 25 MG, 1X/DAY (TAKE ONE TABLET BY MOUTH AT NIGHT)
     Route: 048
  8. TRAZODONE HYDROCHLORIDE. [Concomitant]
     Active Substance: TRAZODONE HYDROCHLORIDE
     Dosage: 150 MG, 1X/DAY (1 TAB BY MOUTH EACH NIGHT)
     Route: 048
  9. ACICLOVIR [Concomitant]
     Active Substance: ACYCLOVIR
     Dosage: 800 MG, UNK (TAKE ONE TAB PO FIVE TIMES A DAY)
     Route: 048
  10. LYRICA [Suspect]
     Active Substance: PREGABALIN
     Indication: DYSPNOEA
     Dosage: UNK, AS NEEDED
  11. CELEBREX [Concomitant]
     Active Substance: CELECOXIB
     Indication: PAIN
     Dosage: 200 MG, DAILY
  12. TOPAMAX [Concomitant]
     Active Substance: TOPIRAMATE
     Dosage: 50 MG, 1X/DAY
     Route: 048
  13. SEROQUEL [Concomitant]
     Active Substance: QUETIAPINE FUMARATE
     Dosage: 50 MG, 1X/DAY
     Route: 048
  14. METFORMIN HYDROCHLORIDE. [Concomitant]
     Active Substance: METFORMIN HYDROCHLORIDE
     Dosage: 500 MG, DAILY (1 PO DAILY WITH 3RD BITE OF LARGEST MEAL)
     Route: 048
  15. CRESTOR [Concomitant]
     Active Substance: ROSUVASTATIN CALCIUM
     Dosage: 20 MG, 1X/DAY (TAKE ONE TAB DAILY AT NIGHT)

REACTIONS (2)
  - Product use issue [Unknown]
  - Pain [Unknown]
